FAERS Safety Report 10244213 (Version 1)
Quarter: 2014Q2

REPORT INFORMATION
  Report Type: Spontaneous
  Country: ES (occurrence: ES)
  Receive Date: 20140618
  Receipt Date: 20140618
  Transmission Date: 20141212
  Serious: Yes (Hospitalization, Other)
  Sender: FDA-Public Use
  Company Number: ES-009507513-1406ESP005754

PATIENT
  Sex: Male

DRUGS (2)
  1. SIMVASTATIN [Suspect]
     Dosage: UNK
  2. RITONAVIR [Interacting]
     Indication: HIV INFECTION
     Dosage: UNK

REACTIONS (4)
  - Renal failure acute [Recovering/Resolving]
  - Hepatotoxicity [Recovering/Resolving]
  - Drug interaction [Recovering/Resolving]
  - Rhabdomyolysis [Recovering/Resolving]
